FAERS Safety Report 23607980 (Version 1)
Quarter: 2024Q1

REPORT INFORMATION
  Report Type: Report from Study
  Country: CA (occurrence: CA)
  Receive Date: 20240307
  Receipt Date: 20240307
  Transmission Date: 20240410
  Serious: Yes (Other)
  Sender: FDA-Public Use
  Company Number: CA-GLAXOSMITHKLINE-CA2023AMR054341

PATIENT
  Age: 47 Year
  Sex: Male

DRUGS (1)
  1. AMBRISENTAN [Suspect]
     Active Substance: AMBRISENTAN
     Indication: Pulmonary arterial hypertension
     Dosage: 10 MG, QD
     Route: 065
     Dates: start: 20230315

REACTIONS (4)
  - Tooth extraction [Recovering/Resolving]
  - Abdominal discomfort [Recovering/Resolving]
  - Nausea [Unknown]
  - Product dose omission issue [Unknown]
